FAERS Safety Report 10255695 (Version 9)
Quarter: 2015Q2

REPORT INFORMATION
  Report Type: Report from Study
  Country: JP (occurrence: JP)
  Receive Date: 20140624
  Receipt Date: 20150625
  Transmission Date: 20150821
  Serious: Yes (Other)
  Sender: FDA-Public Use
  Company Number: PHHY2014JP059042

PATIENT
  Age: 59 Year
  Sex: Male

DRUGS (42)
  1. CLOZARIL [Suspect]
     Active Substance: CLOZAPINE
     Dosage: 50 MG, QD
     Route: 048
     Dates: start: 20131104, end: 20131106
  2. CLOZARIL [Suspect]
     Active Substance: CLOZAPINE
     Dosage: 100 MG, QD
     Route: 048
     Dates: start: 20131110, end: 20131113
  3. NAUZELIN [Suspect]
     Active Substance: DOMPERIDONE
     Indication: PRODUCT USED FOR UNKNOWN INDICATION
     Route: 048
     Dates: end: 20140109
  4. NEULEPTIL [Concomitant]
     Active Substance: PERICIAZINE
     Dosage: 30 MG
     Route: 048
  5. FERROUS SULFATE [Concomitant]
     Active Substance: FERROUS SULFATE\FERROUS SULFATE, DRIED
     Indication: PRODUCT USED FOR UNKNOWN INDICATION
     Dosage: 210 MG, QD
     Route: 048
     Dates: start: 20130523
  6. PURSENNID//SENNOSIDE A+B CALCIUM [Concomitant]
     Active Substance: SENNOSIDES A AND B
     Indication: CONSTIPATION
     Dosage: 36 MG, QD
     Route: 048
     Dates: start: 20130208, end: 20140827
  7. SILECE [Suspect]
     Active Substance: FLUNITRAZEPAM
     Indication: SCHIZOPHRENIA, PARANOID TYPE
     Dosage: 4 MG, QD
     Route: 048
     Dates: start: 20130124, end: 20131128
  8. NEULEPTIL [Concomitant]
     Active Substance: PERICIAZINE
     Dosage: 15 MG, QD
     Route: 048
     Dates: end: 20131121
  9. DEPAKENE [Concomitant]
     Active Substance: VALPROIC ACID
     Indication: PRODUCT USED FOR UNKNOWN INDICATION
     Dosage: 600 MG, QD
     Route: 048
     Dates: start: 20130906
  10. POLLAKISU [Concomitant]
     Indication: PRODUCT USED FOR UNKNOWN INDICATION
     Dosage: 3 MG, QD
     Route: 048
     Dates: start: 20130828
  11. MAGNESIUM OXIDE. [Concomitant]
     Active Substance: MAGNESIUM OXIDE
     Dosage: 1980 MG, QD
     Route: 048
     Dates: start: 20140501
  12. CARMELLOSE SODIUM [Concomitant]
     Active Substance: CARBOXYMETHYLCELLULOSE SODIUM
     Indication: PRODUCT USED FOR UNKNOWN INDICATION
     Dosage: 3 G, QD
     Route: 048
     Dates: start: 20140109
  13. TSUMURA DAISAIKOTOU [Concomitant]
     Indication: CONSTIPATION
     Dosage: 15 G, QD
     Route: 048
     Dates: start: 20140501
  14. CLOZARIL [Suspect]
     Active Substance: CLOZAPINE
     Indication: SCHIZOPHRENIA, PARANOID TYPE
     Dosage: 12.5 MG, QD
     Route: 048
     Dates: start: 20131031
  15. CLOZARIL [Suspect]
     Active Substance: CLOZAPINE
     Dosage: 250 MG, QD
     Route: 048
     Dates: start: 20131128, end: 20131204
  16. SILECE [Suspect]
     Active Substance: FLUNITRAZEPAM
     Dosage: 2 MG, QD
     Route: 048
     Dates: start: 20131129, end: 20140130
  17. LEXOTAN [Concomitant]
     Active Substance: BROMAZEPAM
     Dosage: 5 MG, QD
     Route: 048
     Dates: start: 20140501, end: 20140827
  18. AMITIZA [Concomitant]
     Active Substance: LUBIPROSTONE
     Indication: PRODUCT USED FOR UNKNOWN INDICATION
     Dosage: 48 UG, QD
     Route: 048
     Dates: start: 20140115
  19. CLOZARIL [Suspect]
     Active Substance: CLOZAPINE
     Dosage: 125 MG, QD
     Route: 048
     Dates: start: 20131114, end: 20131116
  20. DEPAKENE [Concomitant]
     Active Substance: VALPROIC ACID
     Dosage: 1400 MG, QD
     Route: 048
     Dates: start: 20140501
  21. URSO [Concomitant]
     Active Substance: URSODIOL
     Indication: PRODUCT USED FOR UNKNOWN INDICATION
     Dosage: 600 MG, QD
     Route: 048
     Dates: start: 20091019, end: 20140827
  22. CLOZARIL [Suspect]
     Active Substance: CLOZAPINE
     Dosage: 75 MG, QD
     Route: 048
     Dates: start: 20131107, end: 20131109
  23. CLOZARIL [Suspect]
     Active Substance: CLOZAPINE
     Dosage: 200 MG, QD
     Route: 048
     Dates: start: 20131121, end: 20131127
  24. NEULEPTIL [Concomitant]
     Active Substance: PERICIAZINE
     Indication: PRODUCT USED FOR UNKNOWN INDICATION
     Dosage: 45 MG
     Route: 048
     Dates: start: 20131031
  25. LEXOTAN [Concomitant]
     Active Substance: BROMAZEPAM
     Indication: SCHIZOPHRENIA, PARANOID TYPE
     Dosage: 15 MG, QD
     Route: 048
     Dates: start: 20130115
  26. CARMELLOSE SODIUM [Concomitant]
     Active Substance: CARBOXYMETHYLCELLULOSE SODIUM
     Dosage: 6 G, QD
     Route: 048
     Dates: start: 20140501
  27. GASCON [Concomitant]
     Active Substance: DIMETHICONE
     Indication: PRODUCT USED FOR UNKNOWN INDICATION
     Dosage: 120 MG, QD
     Route: 048
     Dates: start: 20141023
  28. PANTOSIN [Concomitant]
     Active Substance: PANTETHINE
     Indication: PRODUCT USED FOR UNKNOWN INDICATION
     Dosage: 300 MG, QD
     Route: 065
     Dates: start: 20141023, end: 20141031
  29. CLOZARIL [Suspect]
     Active Substance: CLOZAPINE
     Dosage: 300 MG, QD
     Route: 048
     Dates: start: 20131205, end: 20140115
  30. CLOZARIL [Suspect]
     Active Substance: CLOZAPINE
     Dosage: 350 MG, QD
     Route: 048
     Dates: start: 20140116, end: 20140403
  31. ABILIFY [Concomitant]
     Active Substance: ARIPIPRAZOLE
     Indication: PRODUCT USED FOR UNKNOWN INDICATION
     Dosage: 30 MG
     Route: 048
     Dates: start: 20131031
  32. NEXIUM [Concomitant]
     Active Substance: ESOMEPRAZOLE MAGNESIUM
     Indication: PRODUCT USED FOR UNKNOWN INDICATION
     Dosage: 20 MG, QD
     Route: 048
     Dates: start: 20130523, end: 20140827
  33. ALINAMIN F [Concomitant]
     Active Substance: FURSULTIAMINE HYDROCHLORIDE
     Indication: PRODUCT USED FOR UNKNOWN INDICATION
     Dosage: 7.5 MG, QD
     Route: 048
     Dates: start: 20141023
  34. CLOZARIL [Suspect]
     Active Substance: CLOZAPINE
     Dosage: 25 MG, QD
     Route: 048
     Dates: start: 20131101, end: 20131103
  35. LEVOTOMIN [Concomitant]
     Active Substance: LEVOMEPROMAZINE
     Indication: PRODUCT USED FOR UNKNOWN INDICATION
     Dosage: 50 MG, QD
     Route: 048
     Dates: start: 20131031, end: 20131114
  36. GASMOTIN [Concomitant]
     Active Substance: MOSAPRIDE CITRATE
     Indication: PRODUCT USED FOR UNKNOWN INDICATION
     Dosage: 15 MG, QD
     Route: 048
     Dates: start: 20130115, end: 20140827
  37. KEPPRA [Concomitant]
     Active Substance: LEVETIRACETAM
     Indication: PRODUCT USED FOR UNKNOWN INDICATION
     Dosage: 500 MG, QD
     Route: 048
     Dates: start: 20140501
  38. CLOZARIL [Suspect]
     Active Substance: CLOZAPINE
     Dosage: 150 MG, QD
     Route: 048
     Dates: start: 20131117, end: 20131120
  39. CLOZARIL [Suspect]
     Active Substance: CLOZAPINE
     Dosage: 400 MG, QD
     Route: 048
     Dates: start: 20140404
  40. ABILIFY [Concomitant]
     Active Substance: ARIPIPRAZOLE
     Dosage: 18 MG
     Route: 048
     Dates: end: 20131121
  41. MAGNESIUM OXIDE. [Concomitant]
     Active Substance: MAGNESIUM OXIDE
     Indication: PRODUCT USED FOR UNKNOWN INDICATION
     Dosage: 1180 MG, QD
     Route: 048
     Dates: start: 20140104
  42. PURSENNID//SENNOSIDE A+B CALCIUM [Concomitant]
     Active Substance: SENNOSIDES A AND B
     Dosage: 48 MG, QD
     Route: 048
     Dates: start: 20140828

REACTIONS (18)
  - Monocyte percentage increased [Recovered/Resolved]
  - Tremor [Unknown]
  - Salivary hypersecretion [Not Recovered/Not Resolved]
  - Ileus [Not Recovered/Not Resolved]
  - Blood pressure decreased [Unknown]
  - Parkinsonism [Not Recovered/Not Resolved]
  - Constipation [Recovering/Resolving]
  - Bradykinesia [Not Recovered/Not Resolved]
  - Gait disturbance [Unknown]
  - White blood cell count increased [Recovered/Resolved]
  - Haematocrit decreased [Unknown]
  - Dizziness [Unknown]
  - Nausea [Recovering/Resolving]
  - Haemoglobin decreased [Recovered/Resolved]
  - Eosinophil percentage increased [Recovered/Resolved]
  - Epilepsy [Recovering/Resolving]
  - Haematocrit decreased [Recovered/Resolved]
  - Monocyte percentage increased [Unknown]

NARRATIVE: CASE EVENT DATE: 20131122
